FAERS Safety Report 6001694-X (Version None)
Quarter: 2008Q4

REPORT INFORMATION
  Report Type: 
  Country: None (occurrence: None)
  Receive Date: 20081215
  Receipt Date: 20080703
  Transmission Date: 20090506
  Serious: No
  Sender: FDA-Public Use
  Company Number: US-B.I. PHARMACEUTICALS,INC./RIDGEFIELD-2008-BP-10443BP

PATIENT
  Sex: Female

DRUGS (7)
  1. SPIRIVA [Suspect]
     Indication: EMPHYSEMA
     Dosage: 18MCG
     Route: 055
     Dates: start: 20080101
  2. ADVAIR DISKUS 250/50 [Concomitant]
     Indication: EMPHYSEMA
  3. PROAIR HFA [Concomitant]
     Indication: EMPHYSEMA
  4. PULMICORT-100 [Concomitant]
     Indication: EMPHYSEMA
  5. NORVASC [Concomitant]
     Indication: HYPERTENSION
  6. ATENOLOL [Concomitant]
     Indication: HYPERTENSION
  7. SYNTHROID [Concomitant]
     Indication: HYPOTHYROIDISM

REACTIONS (1)
  - THROMBOSIS [None]
